FAERS Safety Report 8456509-7 (Version None)
Quarter: 2012Q2

REPORT INFORMATION
  Report Type: 
  Country: None (occurrence: None)
  Receive Date: 20120621
  Receipt Date: 20120613
  Transmission Date: 20120825
  Serious: Yes (Hospitalization)
  Sender: FDA-Public Use
  Company Number: US-US-EMD SERONO, INC.-7140343

PATIENT
  Sex: Female

DRUGS (2)
  1. REBIF [Suspect]
     Dates: start: 20120501
  2. REBIF [Suspect]
     Indication: PRODUCT USED FOR UNKNOWN INDICATION
     Route: 058
     Dates: start: 20050418, end: 20120301

REACTIONS (2)
  - INTESTINAL PERFORATION [None]
  - INFECTION [None]
